FAERS Safety Report 5901568-6 (Version None)
Quarter: 2008Q3

REPORT INFORMATION
  Report Type: 
  Country: None (occurrence: None)
  Receive Date: 20080929
  Receipt Date: 20080923
  Transmission Date: 20090109
  Serious: Yes (Other)
  Sender: FDA-Public Use
  Company Number: US-ASTRAZENECA-2008UW19462

PATIENT
  Age: 69 Year
  Sex: Female
  Weight: 117.9 kg

DRUGS (6)
  1. CRESTOR [Suspect]
     Indication: HYPERCHOLESTEROLAEMIA
     Dosage: 20 MG
     Route: 048
     Dates: start: 20070101
  2. AVAPRO [Concomitant]
  3. SOTALOL [Concomitant]
  4. ASPIRIN [Concomitant]
  5. VITAMIN B-12 [Concomitant]
  6. FUROSEMIDE [Concomitant]

REACTIONS (2)
  - PAIN IN EXTREMITY [None]
  - WALKING AID USER [None]
